FAERS Safety Report 9005489 (Version 1)
Quarter: 2013Q1

REPORT INFORMATION
  Report Type: Spontaneous
  Country: US (occurrence: US)
  Receive Date: 20130109
  Receipt Date: 20130109
  Transmission Date: 20140127
  Serious: Yes (Death, Other)
  Sender: FDA-Public Use
  Company Number: US-PFIZER INC-2013005684

PATIENT
  Age: 53 Year
  Sex: Female

DRUGS (5)
  1. VENLAFAXINE HYDROCHLORIDE [Suspect]
     Dosage: UNK
     Route: 048
  2. QUETIAPINE [Suspect]
     Dosage: UNK
     Route: 048
  3. CALCIUM [Suspect]
     Dosage: UNK
     Route: 048
  4. AMANTADINE [Suspect]
     Dosage: UNK
     Route: 048
  5. MEMANTINE [Suspect]
     Dosage: UNK
     Route: 048

REACTIONS (1)
  - Completed suicide [Fatal]
